FAERS Safety Report 17225113 (Version 1)
Quarter: 2019Q4

REPORT INFORMATION
  Report Type: Spontaneous
  Country: US (occurrence: US)
  Receive Date: 20191209
  Receipt Date: 20191209
  Transmission Date: 20200122
  Serious: Yes (Hospitalization)
  Sender: FDA-Public Use
  Company Number: None

PATIENT
  Age: 67 Year
  Sex: Female
  Weight: 53 kg

DRUGS (1)
  1. OXALIPLATIN (OXALIPLATIN 200MG/VIL(PF) INJ) [Suspect]
     Active Substance: OXALIPLATIN
     Indication: COLON CANCER
     Dosage: ?          OTHER FREQUENCY:OTHER;?
     Route: 042
     Dates: start: 20190624, end: 20190920

REACTIONS (8)
  - Swollen tongue [None]
  - Urticaria [None]
  - Dizziness [None]
  - Speech disorder [None]
  - Angioedema [None]
  - Pruritus [None]
  - Hypertension [None]
  - Cough [None]

NARRATIVE: CASE EVENT DATE: 20190930
